FAERS Safety Report 20102254 (Version 4)
Quarter: 2023Q1

REPORT INFORMATION
  Report Type: Spontaneous
  Country: US (occurrence: US)
  Receive Date: 20211123
  Receipt Date: 20230215
  Transmission Date: 20230418
  Serious: Yes (Other)
  Sender: FDA-Public Use
  Company Number: US-PFIZER INC-202101563877

PATIENT
  Age: 73 Year
  Sex: Male
  Weight: 97.52 kg

DRUGS (1)
  1. VYNDAMAX [Suspect]
     Active Substance: TAFAMIDIS
     Indication: Cardiac amyloidosis
     Dosage: 61 MG, DAILY
     Route: 048
     Dates: start: 202003

REACTIONS (35)
  - Atrial fibrillation [Unknown]
  - Thrombocytopenia [Unknown]
  - Retinal exudates [Unknown]
  - Carotid artery stenosis [Unknown]
  - Type 2 diabetes mellitus [Unknown]
  - Cervical spinal stenosis [Unknown]
  - Cataract [Unknown]
  - Nephrolithiasis [Unknown]
  - Knee arthroplasty [Unknown]
  - Obstructive sleep apnoea syndrome [Unknown]
  - Gastrooesophageal reflux disease [Unknown]
  - Spondylitis [Unknown]
  - Liver function test increased [Unknown]
  - Hyperlipidaemia [Unknown]
  - Benign prostatic hyperplasia [Unknown]
  - Large intestine polyp [Unknown]
  - Diverticulum intestinal [Unknown]
  - Obesity [Unknown]
  - Helicobacter infection [Unknown]
  - Urinary incontinence [Unknown]
  - Lymphadenopathy [Unknown]
  - Vitamin B12 deficiency [Unknown]
  - Lumbar spinal stenosis [Unknown]
  - Spinal osteoarthritis [Unknown]
  - Intervertebral disc displacement [Unknown]
  - Sciatica [Unknown]
  - Tachyarrhythmia [Unknown]
  - Atrial flutter [Unknown]
  - Spondylitic myelopathy [Unknown]
  - Post laminectomy syndrome [Unknown]
  - Cervical radiculopathy [Unknown]
  - Seasonal allergy [Unknown]
  - Arthralgia [Unknown]
  - Osteoarthritis [Unknown]
  - Cataract diabetic [Unknown]
